FAERS Safety Report 15599816 (Version 1)
Quarter: 2018Q4

REPORT INFORMATION
  Report Type: Spontaneous
  Country: US (occurrence: US)
  Receive Date: 20181108
  Receipt Date: 20181108
  Transmission Date: 20190205
  Serious: Yes (Other)
  Sender: FDA-Public Use
  Company Number: US-AMGEN-USASP2018155529

PATIENT
  Age: 68 Year
  Sex: Female

DRUGS (6)
  1. ENBREL [Suspect]
     Active Substance: ETANERCEPT
     Indication: PRODUCT USED FOR UNKNOWN INDICATION
     Dosage: UNK
     Route: 065
     Dates: start: 200312
  2. MTX [Suspect]
     Active Substance: METHOTREXATE SODIUM
     Indication: PRODUCT USED FOR UNKNOWN INDICATION
     Dosage: LOW UNSPECIFIED DOSE, UNK
     Route: 065
  3. XELJANZ [Suspect]
     Active Substance: TOFACITINIB CITRATE
     Dosage: 5 MG, BID
     Route: 065
     Dates: start: 201607, end: 201805
  4. XELJANZ [Suspect]
     Active Substance: TOFACITINIB CITRATE
     Indication: PRODUCT USED FOR UNKNOWN INDICATION
     Dosage: 5 MG, BID
     Route: 065
     Dates: start: 201309, end: 201605
  5. ENBREL [Suspect]
     Active Substance: ETANERCEPT
     Dosage: UNK, DECREASED HER ENBREL TWO SHOTS EVERY 10 DAYS
     Route: 065
  6. MTX [Suspect]
     Active Substance: METHOTREXATE SODIUM
     Dosage: UNSPECIFIED DOSE WAS INCREASED, UNK
     Route: 065

REACTIONS (8)
  - Cough [Recovered/Resolved]
  - Gastrointestinal disorder [Recovered/Resolved]
  - Arthralgia [Unknown]
  - Off label use [Unknown]
  - Drug effect incomplete [Unknown]
  - Condition aggravated [Unknown]
  - Herpes zoster [Unknown]
  - Eye infection [Not Recovered/Not Resolved]

NARRATIVE: CASE EVENT DATE: 200912
